FAERS Safety Report 20821083 (Version 6)
Quarter: 2024Q2

REPORT INFORMATION
  Report Type: Spontaneous
  Country: US (occurrence: US)
  Receive Date: 20220512
  Receipt Date: 20240517
  Transmission Date: 20240716
  Serious: Yes (Other)
  Sender: FDA-Public Use
  Company Number: US-PFIZER INC-202200230008

PATIENT
  Age: 76 Year
  Sex: Male
  Weight: 104.31 kg

DRUGS (1)
  1. XELJANZ XR [Suspect]
     Active Substance: TOFACITINIB CITRATE
     Indication: Rheumatoid arthritis
     Dosage: 11 MG
     Route: 048

REACTIONS (7)
  - Cataract [Unknown]
  - Product dose omission issue [Unknown]
  - Joint range of motion decreased [Unknown]
  - Feeling abnormal [Unknown]
  - Movement disorder [Unknown]
  - Hypoacusis [Not Recovered/Not Resolved]
  - Mobility decreased [Unknown]
